FAERS Safety Report 10066382 (Version 1)
Quarter: 2014Q2

REPORT INFORMATION
  Report Type: Spontaneous
  Country: IT (occurrence: IT)
  Receive Date: 20140408
  Receipt Date: 20140408
  Transmission Date: 20141212
  Serious: Yes (Other)
  Sender: FDA-Public Use
  Company Number: IT-WATSON-2013-25123

PATIENT
  Age: 33 Year
  Sex: Female

DRUGS (5)
  1. CIPROFLOXACIN HYDROCHLORIDE (UNKNOWN) [Suspect]
     Indication: PRODUCT USED FOR UNKNOWN INDICATION
     Route: 048
     Dates: start: 20130612, end: 20130612
  2. ADALT CRONO [Concomitant]
     Indication: MORPHOEA
     Route: 048
     Dates: start: 20120101, end: 20120612
  3. EUTIROX [Concomitant]
     Indication: HYPOTHYROIDISM
     Route: 048
     Dates: start: 20030612, end: 20130612
  4. EUTIROX [Concomitant]
     Dosage: 75 ?G, UNK
     Route: 048
     Dates: start: 20030612, end: 20130612
  5. ENDOPROST [Concomitant]
     Indication: MORPHOEA
     Dosage: 0,05MG/0,5ML
     Route: 065
     Dates: start: 20120101, end: 20130612

REACTIONS (4)
  - Erythema [Recovering/Resolving]
  - Feeling hot [Recovering/Resolving]
  - Flushing [Recovering/Resolving]
  - Pyrexia [Recovering/Resolving]
